FAERS Safety Report 9713445 (Version 2)
Quarter: 2013Q4

REPORT INFORMATION
  Report Type: Spontaneous
  Country: US (occurrence: US)
  Receive Date: 20131126
  Receipt Date: 20131126
  Transmission Date: 20140711
  Serious: Yes (Other)
  Sender: FDA-Public Use
  Company Number: US-RB-060348-13

PATIENT
  Age: 35 Year
  Sex: Female

DRUGS (2)
  1. DELSYM ADULT ORANGE LIQUID [Suspect]
     Indication: COUGH
     Dosage: LAST TOOK PRODUCT ON 10-NOV-2013
     Route: 048
     Dates: start: 20131107
  2. DELSYM ADULT ORANGE LIQUID [Suspect]
     Indication: NASOPHARYNGITIS
     Dosage: LAST TOOK PRODUCT ON 10-NOV-2013
     Route: 048
     Dates: start: 20131107

REACTIONS (3)
  - Epistaxis [Recovered/Resolved]
  - Insomnia [Recovered/Resolved]
  - Drug ineffective [Not Recovered/Not Resolved]
